FAERS Safety Report 7987663-9 (Version None)
Quarter: 2011Q4

REPORT INFORMATION
  Report Type: 
  Country: None (occurrence: None)
  Receive Date: 20111216
  Receipt Date: 20111214
  Transmission Date: 20120403
  Serious: Yes (Death, Other)
  Sender: FDA-Public Use
  Company Number: CZ-ABBOTT-11P-217-0869935-00

PATIENT
  Sex: Female
  Weight: 78.5 kg

DRUGS (4)
  1. AMIODARONE HCL [Concomitant]
     Indication: PRODUCT USED FOR UNKNOWN INDICATION
  2. ZEMPLAR [Suspect]
     Indication: HYPOPARATHYROIDISM SECONDARY
     Dates: start: 20110406, end: 20111030
  3. WARFARIN SODIUM [Concomitant]
     Indication: PRODUCT USED FOR UNKNOWN INDICATION
  4. FUROSEMIDE [Concomitant]
     Indication: PRODUCT USED FOR UNKNOWN INDICATION

REACTIONS (27)
  - ATRIAL FIBRILLATION [None]
  - RENAL FAILURE CHRONIC [None]
  - CARDIAC FAILURE [None]
  - ARTERIOSCLEROSIS [None]
  - CEREBRAL ARTERIOSCLEROSIS [None]
  - MITRAL VALVE INCOMPETENCE [None]
  - FIBROSIS [None]
  - BRAIN OEDEMA [None]
  - BRONCHITIS CHRONIC [None]
  - ENCEPHALOPATHY [None]
  - SENILE OSTEOPOROSIS [None]
  - CHOLECYSTECTOMY [None]
  - PULMONARY OEDEMA [None]
  - OEDEMA PERIPHERAL [None]
  - CARDIAC HYPERTROPHY [None]
  - LACUNAR INFARCTION [None]
  - AORTIC STENOSIS [None]
  - LIPOMA [None]
  - MYOCARDIAL FIBROSIS [None]
  - HYPERTENSION [None]
  - ANAEMIA [None]
  - NEPHROSCLEROSIS [None]
  - PNEUMOCONIOSIS [None]
  - LIVER DISORDER [None]
  - CORONARY ARTERY DISEASE [None]
  - MUSCLE ATROPHY [None]
  - UNEVALUABLE EVENT [None]
